FAERS Safety Report 8365094-X (Version None)
Quarter: 2012Q2

REPORT INFORMATION
  Report Type: 
  Country: None (occurrence: None)
  Receive Date: 20120516
  Receipt Date: 20120507
  Transmission Date: 20120825
  Serious: Yes (Hospitalization, Other)
  Sender: FDA-Public Use
  Company Number: US-ASTRAZENECA-2012SE27281

PATIENT
  Age: 64 Year
  Sex: Female

DRUGS (19)
  1. PAXIL [Concomitant]
  2. XANAX [Concomitant]
  3. CRESTOR [Suspect]
     Route: 048
  4. VERAPAMIL [Concomitant]
  5. ADVAIR DISKUS 100/50 [Concomitant]
     Dosage: 500/50 TWO TIMES A DAY
  6. AMBIEN [Concomitant]
     Dosage: 12.5 AS REQUIRED
  7. CYCLOBENZAPRINE HCL [Concomitant]
  8. ASPIRIN [Concomitant]
  9. QUINAPRIL [Concomitant]
  10. FUROSEMIDE [Concomitant]
  11. KLOR-CON [Concomitant]
  12. PANTOPRAZOLE [Concomitant]
  13. PROAIR HFA [Concomitant]
     Dosage: TWO PUFFS TWO TIMES A DAY
  14. SINGULAIR [Concomitant]
  15. THEOPHYLLINE [Concomitant]
  16. CELEBREX [Concomitant]
  17. METFORMIN HCL [Concomitant]
  18. FLUTICASONE FUROATE [Concomitant]
  19. DUONEB [Concomitant]
     Dosage: AS NEEDED FOR NEBULIZER

REACTIONS (2)
  - IMMUNODEFICIENCY [None]
  - PNEUMONIA [None]
